FAERS Safety Report 8107306-3 (Version None)
Quarter: 2012Q1

REPORT INFORMATION
  Report Type: 
  Country: None (occurrence: None)
  Receive Date: 20120202
  Receipt Date: 20120125
  Transmission Date: 20120608
  Serious: Yes (Hospitalization)
  Sender: FDA-Public Use
  Company Number: JP-PFIZER INC-2012020095

PATIENT
  Age: 30 Year
  Sex: Male

DRUGS (5)
  1. ISOTOPE [6, 6-2H] GLUCOSE [Concomitant]
  2. PROPYLTHIOURACIL [Concomitant]
  3. METHYLPREDNISOLONE [Suspect]
     Dosage: 1000 MG, DAILY
  4. METHIMAZOLE [Concomitant]
  5. POTASSIUM [Concomitant]

REACTIONS (1)
  - THYROTOXIC PERIODIC PARALYSIS [None]
